FAERS Safety Report 8948229 (Version 1)
Quarter: 2012Q4

REPORT INFORMATION
  Report Type: Spontaneous
  Country: DE (occurrence: None)
  Receive Date: 20121127
  Receipt Date: 20121127
  Transmission Date: 20130627
  Serious: Yes (Other)
  Sender: FDA-Public Use
  Company Number: GER/GER/12/0026772

PATIENT
  Age: 28 Year
  Sex: Female
  Weight: 75.5 kg

DRUGS (2)
  1. CITALOPRAM (CITALOPRAM) [Suspect]
     Indication: DEPRESSION
     Route: 048
     Dates: start: 20090829, end: 20100606
  2. FEMIBION (FEMIBION) [Concomitant]

REACTIONS (2)
  - Caesarean section [None]
  - Maternal exposure during pregnancy [None]
